FAERS Safety Report 9684142 (Version 1)
Quarter: 2013Q4

REPORT INFORMATION
  Report Type: Spontaneous
  Country: US (occurrence: None)
  Receive Date: 20131111
  Receipt Date: 20131111
  Transmission Date: 20140711
  Serious: Yes (Life-Threatening)
  Sender: FDA-Public Use
  Company Number: None

PATIENT
  Age: 76 Year
  Sex: Male
  Weight: 97.52 kg

DRUGS (2)
  1. RAPAFLO [Suspect]
     Indication: URINE FLOW DECREASED
     Dosage: 1 PILL, AT BEDTIME, TAKEN BY MOUTH
     Dates: start: 20131028, end: 20131102
  2. RAPAFLO [Suspect]
     Indication: PROSTATOMEGALY
     Dosage: 1 PILL, AT BEDTIME, TAKEN BY MOUTH
     Dates: start: 20131028, end: 20131102

REACTIONS (4)
  - Cold sweat [None]
  - Chills [None]
  - Dizziness [None]
  - Tremor [None]
